FAERS Safety Report 22114901 (Version 1)
Quarter: 2023Q1

REPORT INFORMATION
  Report Type: Spontaneous
  Country: US (occurrence: US)
  Receive Date: 20230320
  Receipt Date: 20230320
  Transmission Date: 20230418
  Serious: Yes (Death, Other)
  Sender: FDA-Public Use
  Company Number: US-drreddys-LIT/USA/23/0162634

PATIENT
  Sex: Male

DRUGS (5)
  1. CELECOXIB [Suspect]
     Active Substance: CELECOXIB
     Indication: Neuroblastoma
  2. CYCLOPHOSPHAMIDE [Suspect]
     Active Substance: CYCLOPHOSPHAMIDE
     Indication: Neuroblastoma
     Dosage: DAYS 22-41
     Route: 048
  3. CYCLOPHOSPHAMIDE [Suspect]
     Active Substance: CYCLOPHOSPHAMIDE
     Dosage: DOSE REDUCED
  4. ETOPOSIDE [Suspect]
     Active Substance: ETOPOSIDE
     Indication: Neuroblastoma
     Dosage: DAYS 1-21
     Route: 048
  5. ETOPOSIDE [Suspect]
     Active Substance: ETOPOSIDE
     Dosage: DOSE REDUCED

REACTIONS (9)
  - Death [Fatal]
  - Gastritis haemorrhagic [Unknown]
  - Haematemesis [Unknown]
  - Pneumonia aspiration [Unknown]
  - Acute kidney injury [Unknown]
  - Seizure [Unknown]
  - Product use in unapproved indication [Unknown]
  - Product use issue [Unknown]
  - Overdose [Unknown]
